FAERS Safety Report 8966794 (Version 3)
Quarter: 2013Q2

REPORT INFORMATION
  Report Type: Spontaneous
  Country: IT (occurrence: IT)
  Receive Date: 20121214
  Receipt Date: 20130507
  Transmission Date: 20140414
  Serious: Yes (Hospitalization)
  Sender: FDA-Public Use
  Company Number: DE-009507513-1212DEU004952

PATIENT
  Age: 38 Year
  Sex: Female
  Weight: 70 kg

DRUGS (1)
  1. NEXPLANON [Suspect]
     Indication: CONTRACEPTION
     Dosage: 68 MG DAILY RELEASE
     Route: 058
     Dates: start: 20091112

REACTIONS (2)
  - Paralysis [Unknown]
  - Cerebrovascular accident [Unknown]
